FAERS Safety Report 9102105 (Version 5)
Quarter: 2013Q2

REPORT INFORMATION
  Report Type: Spontaneous
  Country: AU (occurrence: AU)
  Receive Date: 20130218
  Receipt Date: 20130513
  Transmission Date: 20140414
  Serious: Yes (Hospitalization, Other)
  Sender: FDA-Public Use
  Company Number: AU-BIOGENIDEC-2013BI014181

PATIENT
  Age: 42 Year
  Sex: Female

DRUGS (3)
  1. AVONEX [Suspect]
     Indication: PRODUCT USED FOR UNKNOWN INDICATION
     Route: 030
     Dates: start: 201109
  2. CLEXANE [Concomitant]
  3. ZOLOFT [Concomitant]

REACTIONS (5)
  - Stillbirth [Unknown]
  - Infection [Unknown]
  - Breast mass [Unknown]
  - Postpartum haemorrhage [Unknown]
  - Headache [Unknown]
